FAERS Safety Report 8516760-4 (Version None)
Quarter: 2012Q3

REPORT INFORMATION
  Report Type: 
  Country: None (occurrence: None)
  Receive Date: 20120706
  Receipt Date: 20120620
  Transmission Date: 20120928
  Serious: Yes (Hospitalization, Other)
  Sender: FDA-Public Use
  Company Number: 2012000149

PATIENT
  Age: 78 Year
  Weight: 74 kg

DRUGS (4)
  1. DIGOXIN [Concomitant]
  2. PREVISCAN (FLUINDIONE) [Concomitant]
  3. TRAMADOL HYDROHLORIDE [Suspect]
     Indication: BACK PAIN
     Dosage: 250 MG, QD, ORAL
     Route: 048
  4. ACEON [Suspect]
     Indication: ARRHYTHMIA
     Dosage: 5 MG, QD, ORAL
     Route: 048

REACTIONS (4)
  - SYNCOPE [None]
  - TOXICITY TO VARIOUS AGENTS [None]
  - TRANSIENT GLOBAL AMNESIA [None]
  - MEMORY IMPAIRMENT [None]
